FAERS Safety Report 5233126-3 (Version None)
Quarter: 2007Q1

REPORT INFORMATION
  Report Type: 
  Country: None (occurrence: None)
  Receive Date: 20070207
  Receipt Date: 20070130
  Transmission Date: 20070707
  Serious: Yes (Hospitalization)
  Sender: FDA-Public Use
  Company Number: JP-PFIZER INC-2007007284

PATIENT
  Sex: Male

DRUGS (4)
  1. LIPITOR [Suspect]
     Indication: HYPERLIPIDAEMIA
     Dosage: DAILY DOSE:10MG
     Route: 048
     Dates: start: 20060612, end: 20070118
  2. WARFARIN POTASSIUM [Concomitant]
     Indication: MYOCARDIAL INFARCTION
     Route: 048
     Dates: start: 20060214, end: 20070122
  3. WARFARIN POTASSIUM [Concomitant]
     Indication: INTRACARDIAC THROMBUS
  4. IOHEXOL [Concomitant]

REACTIONS (1)
  - LIVER DISORDER [None]
